FAERS Safety Report 10729673 (Version 2)
Quarter: 2015Q1

REPORT INFORMATION
  Report Type: Spontaneous
  Country: TR (occurrence: TR)
  Receive Date: 20150122
  Receipt Date: 20150123
  Transmission Date: 20150721
  Serious: Yes (Death, Other)
  Sender: FDA-Public Use
  Company Number: TR-BAXTER-2014BAX058751

PATIENT
  Age: 67 Year
  Sex: Female
  Weight: 60.5 kg

DRUGS (8)
  1. EXTRANEAL [Suspect]
     Active Substance: CALCIUM CHLORIDE\ICODEXTRIN\MAGNESIUM CHLORIDE\SODIUM CHLORIDE\SODIUM LACTATE
     Indication: CHRONIC KIDNEY DISEASE
     Route: 033
     Dates: start: 2014, end: 20140808
  2. PHYSIONEAL 40 %2.27 [Suspect]
     Active Substance: DEXTROSE\SODIUM BICARBONATE\SODIUM CHLORIDE\SODIUM LACTATE
     Indication: CHRONIC KIDNEY DISEASE
     Route: 033
     Dates: start: 2014, end: 20140808
  3. PHYSIONEAL 40 %2.27 [Suspect]
     Active Substance: DEXTROSE\SODIUM BICARBONATE\SODIUM CHLORIDE\SODIUM LACTATE
     Indication: PERITONEAL DIALYSIS
  4. DIANEAL [Suspect]
     Active Substance: CALCIUM CHLORIDE\DEXTROSE\MAGNESIUM CHLORIDE\SODIUM CHLORIDE\SODIUM LACTATE
     Indication: CHRONIC KIDNEY DISEASE
     Route: 033
     Dates: start: 2014, end: 20140808
  5. PHYSIONEAL 40 %3.86 [Suspect]
     Active Substance: DEXTROSE\SODIUM BICARBONATE\SODIUM CHLORIDE\SODIUM LACTATE
     Indication: CHRONIC KIDNEY DISEASE
     Route: 033
     Dates: start: 2014, end: 20140808
  6. DIANEAL [Suspect]
     Active Substance: CALCIUM CHLORIDE\DEXTROSE\MAGNESIUM CHLORIDE\SODIUM CHLORIDE\SODIUM LACTATE
     Indication: PERITONEAL DIALYSIS
  7. EXTRANEAL [Suspect]
     Active Substance: CALCIUM CHLORIDE\ICODEXTRIN\MAGNESIUM CHLORIDE\SODIUM CHLORIDE\SODIUM LACTATE
     Indication: PERITONEAL DIALYSIS
  8. PHYSIONEAL 40 %3.86 [Suspect]
     Active Substance: DEXTROSE\SODIUM BICARBONATE\SODIUM CHLORIDE\SODIUM LACTATE
     Indication: PERITONEAL DIALYSIS

REACTIONS (2)
  - Cardiac arrest [Unknown]
  - Peritonitis bacterial [Fatal]

NARRATIVE: CASE EVENT DATE: 20140801
